FAERS Safety Report 22085136 (Version 1)
Quarter: 2023Q1

REPORT INFORMATION
  Report Type: Spontaneous
  Country: US (occurrence: None)
  Receive Date: 20230310
  Receipt Date: 20230310
  Transmission Date: 20230417
  Serious: Yes (Other)
  Sender: FDA-Public Use
  Company Number: None

PATIENT
  Age: 60 Year
  Sex: Female
  Weight: 66.15 kg

DRUGS (1)
  1. ESTRADIOL [Suspect]
     Active Substance: ESTRADIOL
     Indication: Polycystic ovaries
     Dosage: .05UG 2 TIMES A MONTH TOPICAL
     Route: 061
     Dates: start: 20220307, end: 20220401

REACTIONS (1)
  - Application site vesicles [None]

NARRATIVE: CASE EVENT DATE: 20220307
